FAERS Safety Report 10144565 (Version 1)
Quarter: 2014Q2

REPORT INFORMATION
  Report Type: Spontaneous
  Country: US (occurrence: US)
  Receive Date: 20140430
  Receipt Date: 20140430
  Transmission Date: 20141212
  Serious: Yes (Death)
  Sender: FDA-Public Use
  Company Number: US-SA-2014SA035779

PATIENT
  Sex: 0

DRUGS (2)
  1. LOVENOX [Suspect]
     Indication: SURGERY
     Route: 065
  2. LOVENOX [Suspect]
     Indication: SURGERY
     Route: 065

REACTIONS (1)
  - Cerebral haemorrhage [Fatal]
